FAERS Safety Report 14319596 (Version 1)
Quarter: 2017Q4

REPORT INFORMATION
  Report Type: Spontaneous
  Country: US (occurrence: US)
  Receive Date: 20171222
  Receipt Date: 20171222
  Transmission Date: 20180321
  Serious: Yes (Hospitalization)
  Sender: FDA-Public Use
  Company Number: US-TEVA-2017-US-835227

PATIENT
  Age: 46 Year
  Sex: Female

DRUGS (2)
  1. PROMETHAZINE [Suspect]
     Active Substance: PROMETHAZINE\PROMETHAZINE HYDROCHLORIDE
     Indication: NAUSEA
     Route: 042
  2. HEPARIN [Interacting]
     Active Substance: HEPARIN SODIUM
     Route: 042

REACTIONS (3)
  - Pulmonary hypertension [Recovered/Resolved]
  - Pulmonary mass [Recovering/Resolving]
  - Labelled drug-drug interaction medication error [Unknown]
